FAERS Safety Report 10982398 (Version 1)
Quarter: 2015Q2

REPORT INFORMATION
  Report Type: Spontaneous
  Country: US (occurrence: None)
  Receive Date: 20150401
  Receipt Date: 20150401
  Transmission Date: 20150821
  Serious: Yes (Hospitalization)
  Sender: FDA-Public Use
  Company Number: None

PATIENT
  Age: 80 Year
  Sex: Male
  Weight: 111 kg

DRUGS (2)
  1. ASPRIN [Suspect]
     Active Substance: ASPIRIN
     Dosage: 0.5 TABLET
     Route: 048
  2. PLAVIX [Suspect]
     Active Substance: CLOPIDOGREL BISULFATE
     Dosage: 1 TABLET
     Route: 048

REACTIONS (2)
  - Malaria [None]
  - Abdominal discomfort [None]

NARRATIVE: CASE EVENT DATE: 20150324
